FAERS Safety Report 4299176-9 (Version None)
Quarter: 2004Q1

REPORT INFORMATION
  Report Type: 
  Country: None (occurrence: None)
  Receive Date: 20040217
  Receipt Date: 20040203
  Transmission Date: 20041129
  Serious: Yes (Other)
  Sender: FDA-Public Use
  Company Number: 2004007120

PATIENT
  Age: 53 Year
  Sex: Female
  Weight: 65.7716 kg

DRUGS (5)
  1. NEURONTIN [Suspect]
     Indication: PARAESTHESIA
     Dosage: (DAILY), ORAL
     Route: 048
     Dates: start: 20030501
  2. TRAMADOL HCL [Concomitant]
  3. PROPACET 100 [Concomitant]
  4. PROVELLA-14 (MEDROXYPROGESTERONE ACETATE, ESTROGENS CONJUGATED) [Concomitant]
  5. ANTIDEPRESSANTS [Concomitant]

REACTIONS (3)
  - AGITATION [None]
  - DEPRESSION [None]
  - INTERVERTEBRAL DISC DEGENERATION [None]
